FAERS Safety Report 13613392 (Version 1)
Quarter: 2017Q2

REPORT INFORMATION
  Report Type: Spontaneous
  Country: US (occurrence: US)
  Receive Date: 20170605
  Receipt Date: 20170605
  Transmission Date: 20170830
  Serious: Yes (Death, Other)
  Sender: FDA-Public Use
  Company Number: US-VIFOR (INTERNATIONAL) INC.-VIT-2016-08663

PATIENT
  Sex: Male

DRUGS (2)
  1. VELTASSA [Suspect]
     Active Substance: PATIROMER
     Indication: PRODUCT USED FOR UNKNOWN INDICATION
     Route: 065
     Dates: start: 20161026, end: 2016
  2. VELTASSA [Suspect]
     Active Substance: PATIROMER
     Route: 065
     Dates: start: 2016

REACTIONS (6)
  - Inappropriate schedule of drug administration [Unknown]
  - Venous occlusion [Unknown]
  - Dizziness [Unknown]
  - Death [Fatal]
  - Cardiac operation [Unknown]
  - Coagulopathy [Unknown]

NARRATIVE: CASE EVENT DATE: 2016
